FAERS Safety Report 8533305 (Version 2)
Quarter: 2013Q2

REPORT INFORMATION
  Report Type: Spontaneous
  Country: US (occurrence: None)
  Receive Date: 20120327
  Receipt Date: 20120709
  Transmission Date: 20140414
  Serious: Yes (Other)
  Sender: FDA-Public Use
  Company Number: PHHY2011US17374

PATIENT
  Age: 59 Year
  Sex: Female
  Weight: 73.9 kg

DRUGS (6)
  1. GLEEVEC (IMATINIB) TABLET, 100MG [Suspect]
     Indication: CHRONIC MYELOID LEUKAEMIA
     Dosage: 400;300 MG, DAILY, ORAL
     Route: 048
     Dates: start: 20020101
  2. IRON (IRON) [Concomitant]
  3. SYNTHROID (LEVOTHYROXINE SODIUM) [Concomitant]
  4. PRILOSEC (OMEPRAZOLE) [Concomitant]
  5. VITAMIN C (ASCORBIC ACID) [Concomitant]
  6. MULTIVITAMINS W/MINERALS (MINERALS NOS, VITAMINS NOS) [Concomitant]

REACTIONS (4)
  - EYE HAEMORRHAGE [None]
  - FATIGUE [None]
  - MUSCLE SPASMS [None]
  - Nausea [None]
